FAERS Safety Report 7480514-0 (Version None)
Quarter: 2011Q2

REPORT INFORMATION
  Report Type: 
  Country: None (occurrence: None)
  Receive Date: 20110516
  Receipt Date: 20110502
  Transmission Date: 20111010
  Serious: Yes (Other)
  Sender: FDA-Public Use
  Company Number: US-JNJFOC-20110501923

PATIENT
  Sex: Female
  Weight: 86.18 kg

DRUGS (4)
  1. FENTANYL [Suspect]
     Indication: GASTROINTESTINAL DISORDER
     Route: 062
     Dates: start: 20090101
  2. FENTANYL [Suspect]
     Indication: PERIARTHRITIS
     Route: 062
     Dates: start: 20090101
  3. FENTANYL [Suspect]
     Indication: NEUROPATHY PERIPHERAL
     Route: 062
     Dates: start: 20090101
  4. FENTANYL [Suspect]
     Indication: INTERVERTEBRAL DISC DEGENERATION
     Route: 062
     Dates: start: 20090101

REACTIONS (3)
  - WRONG TECHNIQUE IN DRUG USAGE PROCESS [None]
  - MYOCARDIAL INFARCTION [None]
  - PRODUCT ADHESION ISSUE [None]
